FAERS Safety Report 8544667-5 (Version None)
Quarter: 2012Q3

REPORT INFORMATION
  Report Type: 
  Country: None (occurrence: None)
  Receive Date: 20120727
  Receipt Date: 20120717
  Transmission Date: 20120928
  Serious: Yes (Other)
  Sender: FDA-Public Use
  Company Number: GB-TEVA-348745ISR

PATIENT
  Age: 75 Year
  Sex: Female
  Weight: 69.85 kg

DRUGS (2)
  1. ATENOLOL [Concomitant]
  2. DILTIAZEM [Suspect]
     Indication: ANGINA PECTORIS
     Route: 048
     Dates: start: 20020101, end: 20120416

REACTIONS (3)
  - WEIGHT INCREASED [None]
  - BREAST ENLARGEMENT [None]
  - ANXIETY [None]
